FAERS Safety Report 10485661 (Version 1)
Quarter: 2014Q4

REPORT INFORMATION
  Report Type: Spontaneous
  Country: FR (occurrence: FR)
  Receive Date: 20141001
  Receipt Date: 20141001
  Transmission Date: 20150528
  Serious: Yes (Hospitalization)
  Sender: FDA-Public Use
  Company Number: FR-ROCHE-1467639

PATIENT
  Age: 53 Year
  Sex: Female

DRUGS (3)
  1. LOXAPAC [Suspect]
     Active Substance: LOXAPINE SUCCINATE
     Indication: WITHDRAWAL SYNDROME
     Route: 048
     Dates: start: 20140225, end: 20140304
  2. VALIUM [Suspect]
     Active Substance: DIAZEPAM
     Indication: WITHDRAWAL SYNDROME
     Route: 048
     Dates: start: 20140225, end: 20140304
  3. DEPAKINE CHRONO [Suspect]
     Active Substance: VALPROATE SODIUM
     Indication: WITHDRAWAL SYNDROME
     Route: 048
     Dates: start: 20140225, end: 20140304

REACTIONS (1)
  - Vascular purpura [Unknown]

NARRATIVE: CASE EVENT DATE: 20140304
